FAERS Safety Report 4531643-2 (Version None)
Quarter: 2004Q4

REPORT INFORMATION
  Report Type: 
  Country: None (occurrence: None)
  Receive Date: 20041220
  Receipt Date: 20041215
  Transmission Date: 20050328
  Serious: Yes (Death)
  Sender: FDA-Public Use
  Company Number: PHEH2004US13358

PATIENT
  Age: 81 Year
  Sex: Male

DRUGS (1)
  1. CLOZARIL [Suspect]
     Dosage: UNK, UNK
     Dates: end: 20041203

REACTIONS (3)
  - DEMENTIA [None]
  - DEMENTIA ALZHEIMER'S TYPE [None]
  - DYSPHAGIA [None]
